FAERS Safety Report 25806070 (Version 1)
Quarter: 2025Q3

REPORT INFORMATION
  Report Type: Spontaneous
  Country: US (occurrence: US)
  Receive Date: 20250916
  Receipt Date: 20250916
  Transmission Date: 20251021
  Serious: No
  Sender: ALEXION PHARMACEUTICALS
  Company Number: US-AstraZeneca-CH-00950299A

PATIENT
  Age: 64 Year
  Sex: Female

DRUGS (1)
  1. SAPHNELO [Suspect]
     Active Substance: ANIFROLUMAB-FNIA
     Route: 065

REACTIONS (6)
  - Product dose omission issue [Unknown]
  - Nasopharyngitis [Unknown]
  - Cough [Unknown]
  - Headache [Unknown]
  - Eye irritation [Unknown]
  - Pain [Unknown]

NARRATIVE: CASE EVENT DATE: 20250908
